FAERS Safety Report 7077424-X (Version None)
Quarter: 2010Q4

REPORT INFORMATION
  Report Type: 
  Country: None (occurrence: None)
  Receive Date: 20101101
  Receipt Date: 20101022
  Transmission Date: 20110411
  Serious: Yes (Other)
  Sender: FDA-Public Use
  Company Number: BR-ABBOTT-10P-020-0680692-00

PATIENT
  Sex: Female
  Weight: 48 kg

DRUGS (4)
  1. HUMIRA [Suspect]
     Indication: CROHN'S DISEASE
     Route: 058
     Dates: start: 20101004, end: 20101012
  2. AZATHIOPRINE [Concomitant]
     Indication: CROHN'S DISEASE
     Route: 048
     Dates: start: 20000101
  3. HYDROCORTISONE [Concomitant]
     Indication: CROHN'S DISEASE
     Route: 042
     Dates: start: 20100730
  4. OMEPRAZOLE [Concomitant]
     Indication: PROPHYLAXIS AGAINST GASTROINTESTINAL ULCER
     Route: 048
     Dates: start: 20100630

REACTIONS (4)
  - AGGRESSION [None]
  - COLONIC FISTULA [None]
  - CONVULSION [None]
  - LOSS OF CONSCIOUSNESS [None]
